APPROVED DRUG PRODUCT: PERINDOPRIL ERBUMINE
Active Ingredient: PERINDOPRIL ERBUMINE
Strength: 8MG
Dosage Form/Route: TABLET;ORAL
Application: A078263 | Product #003
Applicant: LUPIN LTD
Approved: Jan 27, 2010 | RLD: No | RS: No | Type: DISCN